FAERS Safety Report 6286544-9 (Version None)
Quarter: 2009Q3

REPORT INFORMATION
  Report Type: 
  Country: None (occurrence: None)
  Receive Date: 20090727
  Receipt Date: 20090727
  Transmission Date: 20100115
  Serious: Yes (Other)
  Sender: FDA-Public Use
  Company Number: None

PATIENT
  Sex: Female
  Weight: 84.8226 kg

DRUGS (1)
  1. EXFORGE [Suspect]
     Indication: HYPERTENSION
     Dosage: 1 TABLET ONCE DAILY 10-160 MG
     Dates: start: 20090526

REACTIONS (3)
  - ARTHRALGIA [None]
  - BURNING SENSATION [None]
  - MUSCLE ATROPHY [None]
